FAERS Safety Report 9233132 (Version 2)
Quarter: 2013Q2

REPORT INFORMATION
  Report Type: Spontaneous
  Country: US (occurrence: None)
  Receive Date: 20121031
  Receipt Date: 20130107
  Transmission Date: 20140414
  Serious: No
  Sender: FDA-Public Use
  Company Number: PHEH2012US012155

PATIENT
  Age: 56 Year
  Sex: Male

DRUGS (6)
  1. GILENYA [Suspect]
     Indication: MULTIPLE SCLEROSIS
     Route: 048
     Dates: start: 20110830
  2. OXCARBAZEPINE (OXCARBAZEPINE) TABLET, 300MG [Concomitant]
  3. VALACICLOVIR HYDROCHLORIDE (VALACICLOVIR HYDROCHLORIDE) [Concomitant]
  4. LAMOTRIGINE (LAOMOTRIGINE) [Concomitant]
  5. KETOROLAC TROMETHAMINE (KETOLORAC TROMETHAMINE) [Concomitant]
  6. LYRICA (PREGAMBLIN) [Concomitant]

REACTIONS (4)
  - Cognitive disorder [None]
  - Anxiety [None]
  - Depression [None]
  - Headache [None]
